FAERS Safety Report 5949070-X (Version None)
Quarter: 2008Q4

REPORT INFORMATION
  Report Type: 
  Country: None (occurrence: None)
  Receive Date: 20081111
  Receipt Date: 20081030
  Transmission Date: 20090506
  Serious: Yes (Other)
  Sender: FDA-Public Use
  Company Number: GB-PFIZER INC-2008092471

PATIENT
  Age: 68 Year
  Sex: Female

DRUGS (5)
  1. DOXYCYCLINE [Suspect]
     Indication: STAPHYLOCOCCAL INFECTION
  2. FUCIDINE CAP [Suspect]
     Indication: STAPHYLOCOCCAL INFECTION
  3. MINOCYCLINE HCL [Suspect]
     Indication: STAPHYLOCOCCAL INFECTION
  4. MEROPENEM [Concomitant]
     Indication: STAPHYLOCOCCAL INFECTION
  5. VANCOMYCIN [Concomitant]
     Indication: STAPHYLOCOCCAL INFECTION

REACTIONS (2)
  - ABDOMINAL DISCOMFORT [None]
  - DIARRHOEA [None]
